FAERS Safety Report 5598002-5 (Version None)
Quarter: 2008Q1

REPORT INFORMATION
  Report Type: 
  Country: None (occurrence: None)
  Receive Date: 20080122
  Receipt Date: 20080115
  Transmission Date: 20080703
  Serious: Yes (Life-Threatening, Hospitalization)
  Sender: FDA-Public Use
  Company Number: JP-JNJFOC-20071206101

PATIENT
  Sex: Male

DRUGS (1)
  1. FINIBAX [Suspect]
     Indication: BILIARY TRACT INFECTION
     Route: 041

REACTIONS (1)
  - CONVULSION [None]
